FAERS Safety Report 5758674-9 (Version None)
Quarter: 2008Q2

REPORT INFORMATION
  Report Type: 
  Country: None (occurrence: None)
  Receive Date: 20080602
  Receipt Date: 20080521
  Transmission Date: 20081010
  Serious: Yes (Other)
  Sender: FDA-Public Use
  Company Number: 2008012534

PATIENT
  Sex: Male

DRUGS (1)
  1. COOL MINT LISTERINE (MENTHOL, METHYL SALICYLATE, EUCALYPTOL, THYMOL) [Suspect]
     Indication: BREATH ODOUR
     Dosage: UNSPECIFIED, ORAL
     Route: 048

REACTIONS (5)
  - AGEUSIA [None]
  - GLOSSODYNIA [None]
  - ORAL DISCOMFORT [None]
  - OROPHARYNGEAL BLISTERING [None]
  - TONGUE BLISTERING [None]
